FAERS Safety Report 7545350-5 (Version None)
Quarter: 2011Q2

REPORT INFORMATION
  Report Type: 
  Country: None (occurrence: None)
  Receive Date: 20110607
  Receipt Date: 20110524
  Transmission Date: 20111010
  Serious: Yes (Hospitalization, Congenital Anomaly)
  Sender: FDA-Public Use
  Company Number: 2011AP001002

PATIENT
  Sex: Male

DRUGS (1)
  1. MYCOPHENOLATE MOFETIL [Suspect]
     Dosage: 1 G; QD; TRPL

REACTIONS (28)
  - CLEFT PALATE [None]
  - ATRIAL SEPTAL DEFECT [None]
  - HYPOTONIA [None]
  - SINGLE UMBILICAL ARTERY [None]
  - RESPIRATORY DISTRESS [None]
  - ANOMALOUS PULMONARY VENOUS CONNECTION [None]
  - MICROTIA [None]
  - DELAYED FONTANELLE CLOSURE [None]
  - MICROGNATHIA [None]
  - SHOULDER DEFORMITY [None]
  - IRIS COLOBOMA [None]
  - MICROSOMIA [None]
  - FOETAL GROWTH RESTRICTION [None]
  - CRYPTORCHISM [None]
  - DOUBLE OUTLET RIGHT VENTRICLE [None]
  - CAESAREAN SECTION [None]
  - CONGENITAL ACROCHORDON [None]
  - VENTRICULAR SEPTAL DEFECT [None]
  - PULMONARY HYPOPLASIA [None]
  - MATERNAL DRUGS AFFECTING FOETUS [None]
  - JOINT ANKYLOSIS [None]
  - FAILURE TO THRIVE [None]
  - MICROGENIA [None]
  - PULMONARY VALVE STENOSIS [None]
  - APGAR SCORE LOW [None]
  - MICROPHTHALMOS [None]
  - PTERYGIUM COLLI [None]
  - VISUAL ACUITY REDUCED [None]
